FAERS Safety Report 5278484-9 (Version None)
Quarter: 2007Q1

REPORT INFORMATION
  Report Type: 
  Country: None (occurrence: None)
  Receive Date: 20070328
  Receipt Date: 20070228
  Transmission Date: 20070707
  Serious: Yes (Death)
  Sender: FDA-Public Use
  Company Number: 2006UW11662

PATIENT
  Age: 42 Year
  Sex: Female
  Weight: 56.8 kg

DRUGS (2)
  1. SEROQUEL [Suspect]
     Route: 048
  2. HALDOL [Concomitant]
     Dates: end: 19980901

REACTIONS (2)
  - DEATH [None]
  - DIABETES MELLITUS [None]
